FAERS Safety Report 5640134-7 (Version None)
Quarter: 2008Q1

REPORT INFORMATION
  Report Type: 
  Country: None (occurrence: None)
  Receive Date: 20080226
  Receipt Date: 20080226
  Transmission Date: 20080703
  Serious: Yes (Hospitalization, Disabling)
  Sender: FDA-Public Use
  Company Number: None

PATIENT
  Age: 25 Day
  Sex: Male
  Weight: 3.1 kg

DRUGS (1)
  1. E.E.S. [Suspect]
     Indication: CONJUNCTIVITIS CHLAMYDIAL
     Dosage: 0.9 ML  Q6 HR  PO
     Route: 048
     Dates: start: 20080204, end: 20080218

REACTIONS (1)
  - PYLORIC STENOSIS [None]
